FAERS Safety Report 4732014-6 (Version None)
Quarter: 2005Q3

REPORT INFORMATION
  Report Type: 
  Country: None (occurrence: None)
  Receive Date: 20050725
  Receipt Date: 20040707
  Transmission Date: 20060218
  Serious: Yes (Hospitalization)
  Sender: FDA-Public Use
  Company Number: WAES 0407USA00659

PATIENT
  Age: 83 Year
  Sex: Male

DRUGS (8)
  1. VIOXX [Suspect]
     Dosage: 12.5 MG/DAILY/PO
     Route: 048
  2. CARDIZEM [Concomitant]
  3. FLOMAX [Concomitant]
  4. GLUCOTROL [Concomitant]
  5. LUPRON [Concomitant]
  6. NORVASC [Concomitant]
  7. SYNTHROID [Concomitant]
  8. ZOLOFT [Concomitant]

REACTIONS (1)
  - GASTROINTESTINAL HAEMORRHAGE [None]
